FAERS Safety Report 4994972-4 (Version None)
Quarter: 2006Q2

REPORT INFORMATION
  Report Type: 
  Country: None (occurrence: None)
  Receive Date: 20060508
  Receipt Date: 20060428
  Transmission Date: 20061013
  Serious: Yes (Hospitalization, Other)
  Sender: FDA-Public Use
  Company Number: PHBS2006BR06525

PATIENT
  Age: 80 Year
  Sex: Male
  Weight: 95 kg

DRUGS (3)
  1. CLOZAPINE [Suspect]
     Indication: DEMENTIA ALZHEIMER'S TYPE
     Dosage: 25 MG, QD
     Route: 048
     Dates: start: 20060422
  2. CAPTOPRIL [Concomitant]
     Dosage: UNK, Q12H
     Route: 048
     Dates: start: 20000101
  3. UNOPROST [Concomitant]
     Dosage: 1 DF, QHS

REACTIONS (6)
  - ANKYLOGLOSSIA CONGENITAL [None]
  - APHASIA [None]
  - ASTHENIA [None]
  - CEREBROVASCULAR ACCIDENT [None]
  - EYE DISCHARGE [None]
  - FALL [None]
